FAERS Safety Report 7178372-7 (Version None)
Quarter: 2010Q4

REPORT INFORMATION
  Report Type: 
  Country: None (occurrence: None)
  Receive Date: 20101220
  Receipt Date: 20101207
  Transmission Date: 20110411
  Serious: Yes (Hospitalization)
  Sender: FDA-Public Use
  Company Number: US-ELI_LILLY_AND_COMPANY-US201011001614

PATIENT
  Sex: Female

DRUGS (2)
  1. FORTEO [Suspect]
     Indication: OSTEOPOROSIS
     Dosage: 20 UG, DAILY (1/D)
     Route: 058
     Dates: end: 20101102
  2. INSULIN [Concomitant]
     Indication: DIABETES MELLITUS

REACTIONS (7)
  - ALOPECIA [None]
  - DYSPNOEA [None]
  - HAIR TEXTURE ABNORMAL [None]
  - LUNG DISORDER [None]
  - MALAISE [None]
  - OXYGEN SATURATION DECREASED [None]
  - SPINAL COLUMN STENOSIS [None]
